FAERS Safety Report 6867930-2 (Version None)
Quarter: 2010Q3

REPORT INFORMATION
  Report Type: 
  Country: None (occurrence: None)
  Receive Date: 20100722
  Receipt Date: 20100713
  Transmission Date: 20110219
  Serious: Yes (Death, Other)
  Sender: FDA-Public Use
  Company Number: US-SANOFI-AVENTIS-2010SA041289

PATIENT
  Age: 72 Year
  Sex: Male

DRUGS (2)
  1. MULTAQ [Suspect]
     Route: 065
  2. AMIODARONE HCL [Suspect]
     Route: 065

REACTIONS (3)
  - COUGH [None]
  - DEATH [None]
  - RESPIRATORY DISTRESS [None]
